FAERS Safety Report 4494476-1 (Version None)
Quarter: 2004Q4

REPORT INFORMATION
  Report Type: 
  Country: None (occurrence: None)
  Receive Date: 20041102
  Receipt Date: 20041015
  Transmission Date: 20050328
  Serious: Yes (Hospitalization)
  Sender: FDA-Public Use
  Company Number: DSA_25211_2004

PATIENT
  Age: 83 Year
  Sex: Male

DRUGS (4)
  1. DILTIAZEM HCL [Suspect]
     Indication: HYPERTENSION
     Dosage: 60 MG TID PO
     Route: 048
  2. LAMICTAL [Suspect]
     Indication: EPILEPSY
     Dosage: 125 MG BID PO
     Route: 048
     Dates: end: 20040512
  3. PREVISCAN [Suspect]
     Indication: ACUTE MYOCARDIAL INFARCTION
     Dosage: 10 MG Q DAY PO
     Route: 048
  4. OMEPRAZOLE [Suspect]
     Dosage: 20 MG Q DAY PO
     Route: 048
     Dates: end: 20040512

REACTIONS (3)
  - DERMATITIS BULLOUS [None]
  - FUNGAL INFECTION [None]
  - HERPES VIRUS INFECTION [None]
